FAERS Safety Report 18909911 (Version 1)
Quarter: 2021Q1

REPORT INFORMATION
  Report Type: Spontaneous
  Country: US (occurrence: US)
  Receive Date: 20210218
  Receipt Date: 20210218
  Transmission Date: 20210420
  Serious: Yes (Other)
  Sender: FDA-Public Use
  Company Number: None

PATIENT
  Age: 63 Year
  Sex: Female

DRUGS (2)
  1. SOLO MULTIPLE VITAMIN [Concomitant]
  2. TRIAMTERENE 37.5MG/HCTZ 25MG CAPS [Suspect]
     Active Substance: HYDROCHLOROTHIAZIDE\TRIAMTERENE
     Indication: PRODUCT USED FOR UNKNOWN INDICATION
     Dosage: ?          QUANTITY:1 CAPSULE(S);?
     Route: 048
     Dates: start: 20210210, end: 20210214

REACTIONS (4)
  - Fall [None]
  - Spinal column injury [None]
  - Loss of consciousness [None]
  - Head injury [None]

NARRATIVE: CASE EVENT DATE: 20210214
